FAERS Safety Report 5477232-7 (Version None)
Quarter: 2007Q4

REPORT INFORMATION
  Report Type: 
  Country: None (occurrence: None)
  Receive Date: 20071004
  Receipt Date: 20070926
  Transmission Date: 20080405
  Serious: Yes (Hospitalization)
  Sender: FDA-Public Use
  Company Number: US-ELI_LILLY_AND_COMPANY-US200709006457

PATIENT
  Age: 83 Year
  Sex: Male

DRUGS (1)
  1. HUMULIN N [Suspect]
     Dosage: UNK, UNK
     Dates: start: 20030101, end: 20070101

REACTIONS (5)
  - BALANCE DISORDER [None]
  - BLOOD GLUCOSE INCREASED [None]
  - DIZZINESS [None]
  - FALL [None]
  - PAIN IN EXTREMITY [None]
